FAERS Safety Report 19504114 (Version 3)
Quarter: 2021Q3

REPORT INFORMATION
  Report Type: Spontaneous
  Country: US (occurrence: US)
  Receive Date: 20210708
  Receipt Date: 20210826
  Transmission Date: 20211014
  Serious: Yes (Other)
  Sender: FDA-Public Use
  Company Number: US-HORMOSAN PHARMA GMBH-2021-10769

PATIENT
  Sex: Female

DRUGS (1)
  1. DULOXETINE DELAYED?RELEASE DELAYED?RELEASE [Suspect]
     Active Substance: DULOXETINE HYDROCHLORIDE
     Indication: PRODUCT USED FOR UNKNOWN INDICATION
     Dosage: 60 MILLIGRAM, BID
     Route: 065

REACTIONS (8)
  - Vomiting [Unknown]
  - Gait inability [Not Recovered/Not Resolved]
  - Dizziness [Not Recovered/Not Resolved]
  - Feeling abnormal [Unknown]
  - Product dispensing error [Unknown]
  - Impaired driving ability [Unknown]
  - Extra dose administered [Unknown]
  - Choking [Unknown]
